FAERS Safety Report 5336996-3 (Version None)
Quarter: 2007Q2

REPORT INFORMATION
  Report Type: 
  Country: None (occurrence: None)
  Receive Date: 20070529
  Receipt Date: 20070521
  Transmission Date: 20071010
  Serious: Yes (Hospitalization)
  Sender: FDA-Public Use
  Company Number: US-JNJFOC-20070505511

PATIENT
  Sex: Female
  Weight: 74.84 kg

DRUGS (3)
  1. REMICADE [Suspect]
     Dosage: LAST RECEIVED 3 VIALS
  2. REMICADE [Suspect]
     Dosage: LAST RECEIVED 3 VIALS
  3. REMICADE [Suspect]
     Indication: DRUG USE FOR UNKNOWN INDICATION
     Dosage: LAST RECEIVED 3 VIALS

REACTIONS (4)
  - HEPATIC NEOPLASM MALIGNANT [None]
  - NEOPLASM MALIGNANT [None]
  - PANCREATIC CARCINOMA [None]
  - THYROID CANCER [None]
